FAERS Safety Report 14764163 (Version 1)
Quarter: 2018Q2

REPORT INFORMATION
  Report Type: Report from Study
  Country: US (occurrence: US)
  Receive Date: 20180416
  Receipt Date: 20180416
  Transmission Date: 20180711
  Serious: Yes (Hospitalization, Other)
  Sender: FDA-Public Use
  Company Number: US-ROCHE-2089683

PATIENT
  Age: 47 Year
  Sex: Female
  Weight: 55.3 kg

DRUGS (2)
  1. BEVACIZUMAB. [Suspect]
     Active Substance: BEVACIZUMAB
     Indication: SQUAMOUS CELL CARCINOMA OF THE CERVIX
     Dosage: CYCLE= 21 DAYS?ON 08/SEP/2017, MOST RECENT DOSE OF BEVACIZUMAB
     Route: 042
     Dates: start: 20170818
  2. ATEZOLIZUMAB. [Suspect]
     Active Substance: ATEZOLIZUMAB
     Indication: SQUAMOUS CELL CARCINOMA OF THE CERVIX
     Dosage: CYCLE= 21 DAYS?ON 08/SEP/2017, MOST RECENT DOSE OF ATEZOLIZUMAB
     Route: 042
     Dates: start: 20170818

REACTIONS (2)
  - Rectal haemorrhage [Recovered/Resolved]
  - Anaemia [Unknown]

NARRATIVE: CASE EVENT DATE: 20170913
